FAERS Safety Report 12492998 (Version 4)
Quarter: 2017Q4

REPORT INFORMATION
  Report Type: Spontaneous
  Country: US (occurrence: US)
  Receive Date: 20160623
  Receipt Date: 20171005
  Transmission Date: 20180320
  Serious: Yes (Hospitalization, Other)
  Sender: FDA-Public Use
  Company Number: US-009507513-1606USA010463

PATIENT
  Age: 84 Year
  Sex: Male
  Weight: 60 kg

DRUGS (10)
  1. VORICONAZOLE. [Interacting]
     Active Substance: VORICONAZOLE
     Route: 048
  2. METRONIDAZOLE. [Concomitant]
     Active Substance: METRONIDAZOLE
  3. VORICONAZOLE. [Interacting]
     Active Substance: VORICONAZOLE
     Route: 048
  4. VORICONAZOLE. [Interacting]
     Active Substance: VORICONAZOLE
     Dosage: 4 MG/KG (250 MG) Q12H FOR ONE WEEK
     Route: 042
  5. CEFEPIME [Concomitant]
     Active Substance: CEFEPIME HYDROCHLORIDE
  6. VORICONAZOLE. [Interacting]
     Active Substance: VORICONAZOLE
     Route: 042
  7. HEXADROL [Suspect]
     Active Substance: DEXAMETHASONE
     Indication: BRAIN OEDEMA
     Route: 048
  8. VORICONAZOLE. [Interacting]
     Active Substance: VORICONAZOLE
     Indication: BRAIN OEDEMA
     Route: 042
  9. VORICONAZOLE. [Interacting]
     Active Substance: VORICONAZOLE
     Dosage: 6 MG/KG (400 MG) EVERY 12 HOURS (Q12H) X 2 DOSES
     Route: 042
  10. VANCOMYCIN [Concomitant]
     Active Substance: VANCOMYCIN

REACTIONS (5)
  - Disease progression [Recovering/Resolving]
  - Drug interaction [Recovering/Resolving]
  - Hypophagia [Recovering/Resolving]
  - Cognitive disorder [Recovering/Resolving]
  - Therapeutic response decreased [Recovering/Resolving]
